FAERS Safety Report 4350660-9 (Version None)
Quarter: 2004Q2

REPORT INFORMATION
  Report Type: 
  Country: None (occurrence: None)
  Receive Date: 20040427
  Receipt Date: 20040416
  Transmission Date: 20050107
  Serious: No
  Sender: FDA-Public Use
  Company Number: 04P-087-0257759-00

PATIENT
  Age: 79 Year
  Sex: Male

DRUGS (3)
  1. ISOPTIN [Suspect]
     Indication: ATRIAL TACHYCARDIA
     Dosage: 120 MG, 1 IN 1 D, PER ORAL
     Route: 048
     Dates: start: 20040330, end: 20040414
  2. DAI-KENCHU-TO [Suspect]
     Indication: ILEUS
     Dosage: 6 DOSAGE FORMS, 1 IN 1 D, PER ORAL
     Route: 048
     Dates: start: 20040330, end: 20040414
  3. DAI-KENCHU-TO [Suspect]
     Indication: PROPHYLAXIS
     Dosage: 6 DOSAGE FORMS, 1 IN 1 D, PER ORAL
     Route: 048
     Dates: start: 20040330, end: 20040414

REACTIONS (1)
  - EOSINOPHIL COUNT INCREASED [None]
